FAERS Safety Report 6694625-0 (Version None)
Quarter: 2010Q2

REPORT INFORMATION
  Report Type: 
  Country: None (occurrence: None)
  Receive Date: 20100423
  Receipt Date: 20100415
  Transmission Date: 20101027
  Serious: Yes (Hospitalization)
  Sender: FDA-Public Use
  Company Number: US-SANOFI-AVENTIS-2010SA022432

PATIENT
  Age: 55 Year
  Sex: Female

DRUGS (26)
  1. MULTAQ [Suspect]
     Indication: ATRIAL FIBRILLATION
     Route: 048
     Dates: start: 20100401, end: 20100403
  2. COUMADIN [Concomitant]
     Indication: ATRIAL FIBRILLATION
  3. NITRGLYCERIN TRANSDERMAL SYSTEM [Concomitant]
  4. DILTIAZEM HCL [Concomitant]
     Indication: HEART RATE
  5. ISOSORBIDE DINITRATE [Concomitant]
     Indication: HEART RATE
  6. DIGOXIN [Concomitant]
     Indication: HEART RATE
  7. PRAVACHOL [Concomitant]
  8. CALCIUM [Concomitant]
  9. METAMUCIL-2 [Concomitant]
  10. STOOL SOFTENER [Concomitant]
  11. ALUMINIUM HYDROXIDE/MAGNESIUM TRISILICATE/MILK POWDER [Concomitant]
  12. CLONAZEPAM [Concomitant]
  13. VENLAFAXINE HCL [Concomitant]
  14. LORTAB [Concomitant]
  15. DIAZEPAM [Concomitant]
  16. POTASSIUM [Concomitant]
  17. HYDROCHLOROTHIAZIDE [Concomitant]
  18. MACRODANTIN [Concomitant]
  19. TOPAMAX [Concomitant]
  20. SEROQUEL [Concomitant]
  21. OXYTROL [Concomitant]
  22. OXYBUTYNIN CHLORIDE [Concomitant]
  23. ACTOS [Concomitant]
  24. METFORMIN [Concomitant]
  25. ACIPHEX [Concomitant]
  26. PROPAFENONE HCL [Concomitant]

REACTIONS (2)
  - DYSPNOEA [None]
  - PULMONARY OEDEMA [None]
